FAERS Safety Report 8052401-0 (Version None)
Quarter: 2011Q4

REPORT INFORMATION
  Report Type: 
  Country: None (occurrence: None)
  Receive Date: 20111228
  Receipt Date: 20111222
  Transmission Date: 20120403
  Serious: Yes (Other)
  Sender: FDA-Public Use
  Company Number: 2011030469

PATIENT
  Sex: Male
  Weight: 113.3993 kg

DRUGS (8)
  1. ZEMAIRA [Suspect]
     Indication: ALPHA-1 ANTI-TRYPSIN
     Dosage: 60 MG/KG 1X/WEEK, 6.4 ML/MIN INTRAVENOUS (NOT OTHERWISE SPECIFIED)
     Route: 042
     Dates: start: 20111129
  2. CENTRUM ULTA MEN (CENTRUM /00554501/) [Concomitant]
  3. LISINOPRIL [Concomitant]
  4. LIPITOR (ATORVASTAIN CALCIUM) [Concomitant]
  5. CELEBREX (CELEBOXIB) [Concomitant]
  6. HYDROCHLOROTHIAZIDE [Concomitant]
  7. ZYRTEC [Concomitant]
  8. BANOPHEN (DIPHENHYDRAMINE HYDROCHLORIDE) [Concomitant]

REACTIONS (4)
  - HYPERTENSION [None]
  - DYSPNOEA [None]
  - HYPERHIDROSIS [None]
  - CHILLS [None]
